FAERS Safety Report 6933098-7 (Version None)
Quarter: 2010Q3

REPORT INFORMATION
  Report Type: 
  Country: None (occurrence: None)
  Receive Date: 20100817
  Receipt Date: 20100805
  Transmission Date: 20110219
  Serious: Yes (Hospitalization)
  Sender: FDA-Public Use
  Company Number: 2010-1587

PATIENT
  Age: 52 Year
  Sex: Male
  Weight: 111 kg

DRUGS (7)
  1. SOMATULINE DEPOT [Suspect]
     Indication: ACROMEGALY
     Dosage: 90 MG, 1 IN 28 D, SUBCUTANEOUS
     Route: 058
     Dates: start: 20100507
  2. HYDROCORTONE [Concomitant]
  3. SYNTHROID [Concomitant]
  4. SIMVASTATIN [Concomitant]
  5. TESTIM (TESTIM) (TESTOSTERONE) (TESTOSTERONE GEL) [Concomitant]
  6. VIAGRA [Concomitant]
  7. GNC MEGA MEN'S VITAMIN (VITAMINS) [Concomitant]

REACTIONS (5)
  - CHOLELITHIASIS [None]
  - HEPATIC STEATOSIS [None]
  - INJECTION SITE EXTRAVASATION [None]
  - INSOMNIA [None]
  - PANCREATITIS [None]
